FAERS Safety Report 8919470 (Version 1)
Quarter: 2012Q4

REPORT INFORMATION
  Report Type: 
  Country: US (occurrence: US)
  Receive Date: 20121121
  Receipt Date: 20121121
  Transmission Date: 20130627
  Serious: Yes (Life-Threatening)
  Sender: FDA-Public Use
  Company Number: US-B.I. PHARMACEUTICALS,INC./RIDGEFIELD-2012-BI-00419BP

PATIENT
  Age: 72 None
  Sex: Female
  Weight: 54 kg

DRUGS (9)
  1. SPIRIVA [Suspect]
     Indication: LUNG NEOPLASM MALIGNANT
     Dosage: 18 mcg
     Route: 055
     Dates: start: 201210
  2. SPIRIVA [Suspect]
     Dosage: 19 mcg
     Route: 055
     Dates: start: 201204, end: 201208
  3. SPIRIVA [Suspect]
     Route: 048
     Dates: start: 20121113, end: 20121113
  4. LOSARTAN/HCTZ [Concomitant]
     Indication: HYPERTENSION
     Route: 048
     Dates: start: 2009
  5. SIMVASTATIN [Concomitant]
     Indication: BLOOD CHOLESTEROL INCREASED
     Dosage: (Tablet) Strength: 40 mg; Daily Dose: 40 mg
     Route: 048
     Dates: start: 2008
  6. B COMPLEX [Concomitant]
     Indication: SUPPLEMENTATION THERAPY
     Route: 048
     Dates: start: 201204
  7. THEMAX WITH IRON [Concomitant]
     Indication: SUPPLEMENTATION THERAPY
     Route: 048
     Dates: start: 201204
  8. FOLIC ACID [Concomitant]
     Indication: SUPPLEMENTATION THERAPY
     Route: 048
     Dates: start: 201204
  9. ZOLPIDEM [Concomitant]
     Indication: INSOMNIA
     Dosage: 5 mg
     Route: 048
     Dates: start: 201111

REACTIONS (5)
  - Lung neoplasm malignant [Not Recovered/Not Resolved]
  - Dry throat [Recovered/Resolved]
  - Dysphonia [Recovered/Resolved]
  - Urinary tract infection [Not Recovered/Not Resolved]
  - Incorrect route of drug administration [Recovered/Resolved]
